FAERS Safety Report 10619974 (Version 1)
Quarter: 2014Q4

REPORT INFORMATION
  Report Type: Spontaneous
  Country: IT (occurrence: None)
  Receive Date: 20141128
  Receipt Date: 20141128
  Transmission Date: 20150529
  Serious: Yes (Death)
  Sender: FDA-Public Use
  Company Number: IMP_08240_2014

PATIENT
  Age: 58 Year
  Sex: Male

DRUGS (1)
  1. BACLOFEN (BACLOFEN) [Suspect]
     Active Substance: BACLOFEN
     Indication: REHABILITATION THERAPY
     Dosage: (20 MCG INTRATRACHEAL), (DF, ORAL)
     Route: 037

REACTIONS (5)
  - Therapeutic response decreased [None]
  - Bradycardia [None]
  - Refusal of treatment by patient [None]
  - Cardiac arrest [None]
  - Hypotension [None]
